FAERS Safety Report 6432332-X (Version None)
Quarter: 2009Q4

REPORT INFORMATION
  Report Type: 
  Country: None (occurrence: None)
  Receive Date: 20091109
  Receipt Date: 20091102
  Transmission Date: 20100525
  Serious: Yes (Life-Threatening, Hospitalization, Other)
  Sender: FDA-Public Use
  Company Number: CA-ROXANE LABORATORIES, INC.-2009-RO-01125RO

PATIENT
  Age: 2 Year
  Sex: Male
  Weight: 13 kg

DRUGS (8)
  1. FLECAINIDE ACETATE [Suspect]
     Indication: NODAL ARRHYTHMIA
     Route: 048
  2. FLECAINIDE ACETATE [Suspect]
     Dosage: 100 MG
     Route: 048
  3. NADOLOL [Suspect]
     Indication: NODAL ARRHYTHMIA
     Route: 048
  4. OXYGEN [Concomitant]
     Indication: MECHANICAL VENTILATION
  5. ATROPINE [Concomitant]
     Indication: BRADYCARDIA
     Route: 042
  6. DEXTROSE [Concomitant]
     Indication: HYPOGLYCAEMIA
  7. SODIUM BICARBONATE IN PLASTIC CONTAINER [Concomitant]
     Indication: DRUG TOXICITY
     Dosage: 30 MEQ
     Route: 042
  8. SODIUM BICARBONATE IN PLASTIC CONTAINER [Concomitant]
     Indication: TACHYCARDIA

REACTIONS (15)
  - BRADYCARDIA [None]
  - BUNDLE BRANCH BLOCK LEFT [None]
  - CAPILLARY NAIL REFILL TEST ABNORMAL [None]
  - CARDIAC FUNCTION TEST ABNORMAL [None]
  - CONVULSION [None]
  - DRUG TOXICITY [None]
  - DYSPNOEA [None]
  - HYPOGLYCAEMIA [None]
  - MEDICATION ERROR [None]
  - PALLOR [None]
  - PERIPHERAL COLDNESS [None]
  - SOMNOLENCE [None]
  - TACHYCARDIA [None]
  - UNRESPONSIVE TO STIMULI [None]
  - VITAL FUNCTIONS ABNORMAL [None]
